FAERS Safety Report 16522030 (Version 1)
Quarter: 2019Q3

REPORT INFORMATION
  Report Type: Spontaneous
  Country: DK (occurrence: DK)
  Receive Date: 20190703
  Receipt Date: 20190703
  Transmission Date: 20191004
  Serious: Yes (Hospitalization)
  Sender: FDA-Public Use
  Company Number: DK-TEVA-2019-DK-1072145

PATIENT
  Age: 81 Year
  Sex: Female

DRUGS (2)
  1. HJERTEMAGNYL [ACETYLSALICYLIC ACID\MAGNESIUM OXIDE] [Concomitant]
     Active Substance: ASPIRIN\MAGNESIUM OXIDE
     Indication: THROMBOSIS PROPHYLAXIS
     Dosage: STRENGTH: 75 MG
     Route: 048
     Dates: start: 20161122, end: 20190606
  2. ALLOPURINOL ^TEVA^ [Suspect]
     Active Substance: ALLOPURINOL
     Indication: GOUT
     Dosage: STRENGTH: 300
     Route: 048
     Dates: start: 20190417, end: 20190527

REACTIONS (4)
  - Eosinophilia [Unknown]
  - Drug reaction with eosinophilia and systemic symptoms [Recovered/Resolved with Sequelae]
  - Pyrexia [Unknown]
  - Rash maculo-papular [Unknown]

NARRATIVE: CASE EVENT DATE: 201905
